FAERS Safety Report 8489260-8 (Version None)
Quarter: 2012Q2

REPORT INFORMATION
  Report Type: 
  Country: None (occurrence: None)
  Receive Date: 20120628
  Receipt Date: 20120628
  Transmission Date: 20120825
  Serious: Yes (Hospitalization)
  Sender: FDA-Public Use
  Company Number: None

PATIENT
  Sex: Male
  Weight: 102.51 kg

DRUGS (2)
  1. TAXOL [Suspect]
     Dosage: 570 MG
  2. CARBOPLATIN [Suspect]
     Dosage: 1500 MG

REACTIONS (11)
  - DYSPHAGIA [None]
  - HYPONATRAEMIA [None]
  - NAUSEA [None]
  - CHEST PAIN [None]
  - FATIGUE [None]
  - VOMITING [None]
  - BODY TEMPERATURE INCREASED [None]
  - DECREASED APPETITE [None]
  - DEHYDRATION [None]
  - DYSPNOEA EXERTIONAL [None]
  - HAEMOGLOBIN DECREASED [None]
